FAERS Safety Report 16566089 (Version 1)
Quarter: 2019Q3

REPORT INFORMATION
  Report Type: Spontaneous
  Country: US (occurrence: US)
  Receive Date: 20190531
  Receipt Date: 20190531
  Transmission Date: 20191004
  Serious: Yes (Hospitalization)
  Sender: FDA-Public Use
  Company Number: None

PATIENT
  Age: 79 Year
  Sex: Male
  Weight: 101 kg

DRUGS (2)
  1. APIXABAN [Suspect]
     Active Substance: APIXABAN
     Indication: HAEMORRHAGE CORONARY ARTERY
     Route: 048
     Dates: start: 20181129, end: 20190428
  2. APIXABAN [Suspect]
     Active Substance: APIXABAN
     Indication: ATRIAL FIBRILLATION
     Route: 048
     Dates: start: 20181129, end: 20190428

REACTIONS (2)
  - Cerebral haemorrhage [None]
  - Fall [None]

NARRATIVE: CASE EVENT DATE: 20190428
